FAERS Safety Report 19945155 (Version 1)
Quarter: 2021Q4

REPORT INFORMATION
  Report Type: Report from Study
  Country: None (occurrence: DO)
  Receive Date: 20211011
  Receipt Date: 20211011
  Transmission Date: 20220303
  Serious: Yes (Other)
  Sender: FDA-Public Use
  Company Number: DO-ABBVIE-21K-279-3782488-00

PATIENT
  Age: 55 Year
  Sex: Female
  Weight: 54 kg

DRUGS (3)
  1. HUMIRA [Suspect]
     Active Substance: ADALIMUMAB
     Indication: Rheumatoid arthritis
     Route: 058
     Dates: start: 20140501, end: 20210203
  2. HUMIRA [Suspect]
     Active Substance: ADALIMUMAB
     Route: 058
     Dates: start: 2021, end: 20210921
  3. PREDNISOLONE [Concomitant]
     Active Substance: PREDNISOLONE
     Indication: Rheumatoid arthritis

REACTIONS (10)
  - Meniscus injury [Recovering/Resolving]
  - Tendonitis [Recovering/Resolving]
  - Diabetes mellitus [Recovering/Resolving]
  - Pain in extremity [Recovering/Resolving]
  - Back pain [Recovering/Resolving]
  - Arthritis [Not Recovered/Not Resolved]
  - COVID-19 [Recovered/Resolved with Sequelae]
  - Influenza [Recovering/Resolving]
  - Fall [Not Recovered/Not Resolved]
  - Joint swelling [Recovering/Resolving]

NARRATIVE: CASE EVENT DATE: 20201101
